FAERS Safety Report 7869251-8 (Version None)
Quarter: 2011Q4

REPORT INFORMATION
  Report Type: 
  Country: None (occurrence: None)
  Receive Date: 20111021
  Receipt Date: 20111004
  Transmission Date: 20120403
  Serious: Yes (Other)
  Sender: FDA-Public Use
  Company Number: B0754818A

PATIENT
  Age: 41 Year
  Sex: Female

DRUGS (5)
  1. RITONAVIR [Suspect]
     Indication: HIV INFECTION
  2. LAMIVUDINE [Suspect]
     Indication: HIV INFECTION
  3. ATAZANAVIR [Suspect]
     Indication: HIV INFECTION
  4. TENOFOVIR DISOPROXIL FUMARATE [Suspect]
     Indication: HIV INFECTION
  5. TRIAMCINOLONE ACETONIDE [Suspect]
     Indication: DERMATITIS
     Dosage: 60 MG / SINGLE DOSE / INTRAMUSCULAR
     Route: 030

REACTIONS (3)
  - CUSHING'S SYNDROME [None]
  - IATROGENIC INJURY [None]
  - ADRENAL SUPPRESSION [None]
